FAERS Safety Report 12966118 (Version 1)
Quarter: 2016Q4

REPORT INFORMATION
  Report Type: Spontaneous
  Country: US (occurrence: US)
  Receive Date: 20161120
  Receipt Date: 20161120
  Transmission Date: 20170207
  Serious: Yes (Disabling)
  Sender: FDA-Public Use
  Company Number: None

PATIENT
  Age: 30 Year
  Sex: Female
  Weight: 75.6 kg

DRUGS (1)
  1. OLANZIPINE [Suspect]
     Active Substance: OLANZAPINE
     Indication: BIPOLAR DISORDER
     Dosage: ?          QUANTITY:8 TABLET(S);?
     Route: 048
     Dates: start: 20161029, end: 20161108

REACTIONS (6)
  - Seizure [None]
  - Panic attack [None]
  - Muscle tightness [None]
  - Hypersomnia [None]
  - Heart rate increased [None]
  - Tension [None]

NARRATIVE: CASE EVENT DATE: 20161029
